FAERS Safety Report 19187766 (Version 1)
Quarter: 2021Q2

REPORT INFORMATION
  Report Type: Spontaneous
  Country: DE (occurrence: DE)
  Receive Date: 20210428
  Receipt Date: 20210428
  Transmission Date: 20210717
  Serious: Yes (Other)
  Sender: FDA-Public Use
  Company Number: DE-AUROBINDO-AUR-APL-2021-016627

PATIENT
  Age: 2 Week
  Sex: Female
  Weight: 3.08 kg

DRUGS (7)
  1. LEVETIRACETAM. [Suspect]
     Active Substance: LEVETIRACETAM
     Indication: SEIZURE
     Dosage: 20 MILLIGRAM/KILOGRAM, DAILY
     Route: 065
  2. LEVETIRACETAM. [Suspect]
     Active Substance: LEVETIRACETAM
     Dosage: 56 MILLIGRAM/KILOGRAM, DAILY
     Route: 065
  3. VALPROATE SODIUM. [Suspect]
     Active Substance: VALPROATE SODIUM
     Indication: SEIZURE
     Dosage: 23 MILLIGRAM/KILOGRAM, DAILY
     Route: 065
  4. VIGABATRIN. [Suspect]
     Active Substance: VIGABATRIN
     Indication: SEIZURE
     Dosage: UNK
     Route: 065
  5. VALPROATE SODIUM. [Suspect]
     Active Substance: VALPROATE SODIUM
     Indication: INFANTILE SPASMS
  6. PREDNISOLONE. [Suspect]
     Active Substance: PREDNISOLONE
     Indication: SEIZURE
     Dosage: UNK
     Route: 065
  7. SULTIAME [Suspect]
     Active Substance: SULTHIAME
     Indication: SEIZURE
     Dosage: UNK
     Route: 065

REACTIONS (1)
  - Drug ineffective [Unknown]
